FAERS Safety Report 22312404 (Version 1)
Quarter: 2023Q2

REPORT INFORMATION
  Report Type: Report from Study
  Country: US (occurrence: US)
  Receive Date: 20230512
  Receipt Date: 20230512
  Transmission Date: 20230721
  Serious: Yes (Other)
  Sender: FDA-Public Use
  Company Number: US-AUROBINDO-AUR-APL-2023-035473

PATIENT

DRUGS (1)
  1. DEXAMETHASONE [Suspect]
     Active Substance: DEXAMETHASONE
     Indication: Pain management
     Dosage: 10 MILLIGRAM (PERIOPERATIVELY AND ON POSTOPERATIVE DAY 1.)
     Route: 042

REACTIONS (1)
  - Pasteurella infection [Unknown]
